FAERS Safety Report 16647064 (Version 1)
Quarter: 2019Q3

REPORT INFORMATION
  Report Type: Spontaneous
  Country: US (occurrence: US)
  Receive Date: 20190730
  Receipt Date: 20190730
  Transmission Date: 20191004
  Serious: No
  Sender: FDA-Public Use
  Company Number: US-TEVA-2019-US-1085581

PATIENT
  Age: 32 Year
  Sex: Female
  Weight: 91 kg

DRUGS (4)
  1. AJOVY [Suspect]
     Active Substance: FREMANEZUMAB-VFRM
     Indication: MIGRAINE WITH AURA
     Dosage: THE PATIENT^S SECOND AND THIRD INJECTIONS WERE DURING 6/2019 AND 7/2019
     Dates: start: 201905
  2. MIRTAZAPINE. [Concomitant]
     Active Substance: MIRTAZAPINE
     Indication: ANXIETY
  3. MIRTAZAPINE. [Concomitant]
     Active Substance: MIRTAZAPINE
     Indication: DEPRESSION
  4. AJOVY [Suspect]
     Active Substance: FREMANEZUMAB-VFRM
     Indication: VESTIBULAR MIGRAINE

REACTIONS (1)
  - Menstruation delayed [Not Recovered/Not Resolved]

NARRATIVE: CASE EVENT DATE: 201906
